FAERS Safety Report 7138549-3 (Version None)
Quarter: 2010Q4

REPORT INFORMATION
  Report Type: 
  Country: None (occurrence: None)
  Receive Date: 20101118
  Receipt Date: 20101111
  Transmission Date: 20110411
  Serious: Yes (Death)
  Sender: FDA-Public Use
  Company Number: 1000012146

PATIENT
  Age: 49 Year
  Sex: Male

DRUGS (4)
  1. CITALOPRAM HYDROBROMIDE [Suspect]
  2. MIRTAZAPINE [Suspect]
  3. GABAPENTIN [Suspect]
  4. HYDROXYZINE [Suspect]

REACTIONS (1)
  - CARDIO-RESPIRATORY ARREST [None]
